FAERS Safety Report 6699320-X (Version None)
Quarter: 2010Q2

REPORT INFORMATION
  Report Type: 
  Country: None (occurrence: None)
  Receive Date: 20100426
  Receipt Date: 20100406
  Transmission Date: 20101027
  Serious: Yes (Other)
  Sender: FDA-Public Use
  Company Number: GB-DEXPHARM-20100414

PATIENT
  Age: 45 Year
  Sex: Male

DRUGS (4)
  1. DICLOFENAC [Suspect]
     Indication: PAIN
     Dosage: ORAL
     Route: 048
  2. ACETAMINOPHEN AND CODEINE PHOSPHATE [Concomitant]
  3. ENBREL [Suspect]
     Indication: ANKYLOSING SPONDYLITIS
     Dosage: 25 MG MILLIGRAM 9S) SEP. DOSAGES/INTERVAL: 2 IN 1 WEEK SUBCUTANEOUS
     Route: 058
     Dates: start: 20060619, end: 20090801
  4. ENBREL [Suspect]
     Indication: ANKYLOSING SPONDYLITIS
     Dosage: 25 MG MILLIGRAM 9S) SEP. DOSAGES/INTERVAL: 2 IN 1 WEEK SUBCUTANEOUS
     Route: 058
     Dates: start: 20100315

REACTIONS (8)
  - ALANINE AMINOTRANSFERASE INCREASED [None]
  - ANKYLOSING SPONDYLITIS [None]
  - BLOOD ALKALINE PHOSPHATASE INCREASED [None]
  - CONDITION AGGRAVATED [None]
  - DEPRESSION SUICIDAL [None]
  - FIBROSIS [None]
  - GAMMA-GLUTAMYLTRANSFERASE INCREASED [None]
  - NEUTROPENIA [None]
